FAERS Safety Report 9122986 (Version 1)
Quarter: 2013Q1

REPORT INFORMATION
  Report Type: Spontaneous
  Country: MX (occurrence: MX)
  Receive Date: 20130115
  Receipt Date: 20130115
  Transmission Date: 20140127
  Serious: Yes (Hospitalization)
  Sender: FDA-Public Use
  Company Number: PHHY2013MX003343

PATIENT
  Age: 79 Year
  Sex: Female

DRUGS (1)
  1. CO-DIOVAN [Suspect]
     Indication: HYPERTENSION
     Dosage: 1 DF, (320 MG VALS AND 12.5 MG HCTZ), DAILY
     Route: 048
     Dates: start: 20121225

REACTIONS (1)
  - Respiratory disorder [Not Recovered/Not Resolved]
